FAERS Safety Report 4848743-X (Version None)
Quarter: 2005Q4

REPORT INFORMATION
  Report Type: 
  Country: None (occurrence: None)
  Receive Date: 20051206
  Receipt Date: 20051115
  Transmission Date: 20060501
  Serious: Yes (Hospitalization)
  Sender: FDA-Public Use
  Company Number: US200511000789

PATIENT
  Age: 72 Year
  Sex: Female
  Weight: 88.9 kg

DRUGS (16)
  1. CYMBALTA [Suspect]
     Dates: end: 20050528
  2. PHILLIPS LAXCAPS (DOCUSATE SODIUM, PHENOLPHTHALEIN) CAPSULE [Concomitant]
  3. LISINOPRIL [Concomitant]
  4. AMLODIPINE BESYLATE [Concomitant]
  5. ATORVASTATIN CALCIUM [Concomitant]
  6. FUROSEMIDE [Concomitant]
  7. GLUCOTROL XL [Concomitant]
  8. AVANDIA [Concomitant]
  9. HYDROCODONE BITARTRATE + ACETAMINOPHEN [Concomitant]
  10. LEXAPRO /USA/ (ESCITALOPRAM) [Concomitant]
  11. XALATAN (LATANOPROST, TIMOLOL) [Concomitant]
  12. CLARITIN /USA/ (LORATADINE) [Concomitant]
  13. MULTIVITAMINS, PLAIN [Concomitant]
  14. LANTUS [Concomitant]
  15. DETROL - SLOW RELEASE (TOLTERODINE L-TARTRATE) [Concomitant]
  16. VITAMINS, OTHER COMBINATIONS [Concomitant]

REACTIONS (5)
  - ABDOMINAL PAIN UPPER [None]
  - ERYTHEMA [None]
  - LARGE INTESTINAL HAEMORRHAGE [None]
  - MUSCLE SPASMS [None]
  - THINKING ABNORMAL [None]
